FAERS Safety Report 24285413 (Version 1)
Quarter: 2024Q3

REPORT INFORMATION
  Report Type: Spontaneous
  Country: US (occurrence: US)
  Receive Date: 20240905
  Receipt Date: 20240905
  Transmission Date: 20241017
  Serious: Yes (Other)
  Sender: APOTEX
  Company Number: US-APOTEX-2024AP010140

PATIENT
  Age: 24 Year
  Sex: Female

DRUGS (3)
  1. GABAPENTIN [Suspect]
     Active Substance: GABAPENTIN
     Indication: Insomnia
     Dosage: UNK
     Route: 065
  2. TRAZODONE [Suspect]
     Active Substance: TRAZODONE HYDROCHLORIDE
     Indication: Product used for unknown indication
     Dosage: 50 MILLIGRAM, Q.H.S.
     Route: 065
  3. LORAZEPAM [Suspect]
     Active Substance: LORAZEPAM
     Indication: Insomnia
     Dosage: UNK
     Route: 065

REACTIONS (6)
  - Hallucination, visual [Recovered/Resolved]
  - Drug intolerance [Recovered/Resolved]
  - Disturbance in sexual arousal [Recovered/Resolved]
  - Orgasm abnormal [Recovered/Resolved]
  - Discomfort [Recovered/Resolved]
  - Emotional disorder [Recovered/Resolved]
